FAERS Safety Report 17093881 (Version 2)
Quarter: 2019Q4

REPORT INFORMATION
  Report Type: Spontaneous
  Country: US (occurrence: US)
  Receive Date: 20191129
  Receipt Date: 20191216
  Transmission Date: 20200122
  Serious: No
  Sender: FDA-Public Use
  Company Number: US-TEVA-2019-US-1145086

PATIENT

DRUGS (1)
  1. QVAR REDIHALER [Suspect]
     Active Substance: BECLOMETHASONE DIPROPIONATE
     Indication: ASTHMA
     Route: 055
     Dates: start: 201806

REACTIONS (5)
  - Device defective [Unknown]
  - Visual impairment [Unknown]
  - Swelling face [Unknown]
  - Drug delivery system issue [Unknown]
  - Product quality issue [Unknown]
